FAERS Safety Report 24401286 (Version 2)
Quarter: 2024Q4

REPORT INFORMATION
  Report Type: Spontaneous
  Country: GR (occurrence: GR)
  Receive Date: 20241007
  Receipt Date: 20241010
  Transmission Date: 20250115
  Serious: Yes (Death, Life-Threatening, Hospitalization, Other)
  Sender: BOEHRINGER INGELHEIM
  Company Number: None

PATIENT
  Age: 82 Year
  Sex: Female

DRUGS (7)
  1. OFEV [Suspect]
     Active Substance: NINTEDANIB
     Indication: Product used for unknown indication
     Route: 048
     Dates: start: 20220616, end: 20240422
  2. ELIQUIS [Concomitant]
     Active Substance: APIXABAN
     Indication: Product used for unknown indication
  3. ZOLOFT [Concomitant]
     Active Substance: SERTRALINE HYDROCHLORIDE
     Indication: Product used for unknown indication
  4. PREZOLON 5mg [Concomitant]
     Indication: Product used for unknown indication
  5. EMCONCOR 2.5mg [Concomitant]
     Indication: Product used for unknown indication
  6. MYFENAX 500mg [Concomitant]
     Indication: Product used for unknown indication
     Dosage: 500MG X2 TABS X2  DAILY
     Route: 048
     Dates: start: 20200610, end: 20231127
  7. MODULAIR 10mg film coated tablets [Concomitant]
     Indication: Product used for unknown indication

REACTIONS (3)
  - Oxygen saturation decreased [Fatal]
  - Respiratory tract infection [Fatal]
  - Respiratory tract infection [Recovered/Resolved]

NARRATIVE: CASE EVENT DATE: 20240501
